FAERS Safety Report 7094009-X (Version None)
Quarter: 2010Q4

REPORT INFORMATION
  Report Type: 
  Country: None (occurrence: None)
  Receive Date: 20101110
  Receipt Date: 20101029
  Transmission Date: 20110411
  Serious: Yes (Hospitalization)
  Sender: FDA-Public Use
  Company Number: KR-ELI_LILLY_AND_COMPANY-KR201011000117

PATIENT
  Age: 44 Year
  Sex: Male

DRUGS (3)
  1. HUMALOG MIX 75/25 [Suspect]
     Indication: DIABETES MELLITUS
     Dosage: 14U MORNING, 10U EVENING
     Dates: start: 20101011
  2. HUMALOG MIX 75/25 [Suspect]
     Dosage: 10 U, EACH EVENING
     Dates: start: 20101011
  3. IMMUNOSUPPRESSANTS [Concomitant]
     Indication: RENAL TRANSPLANT
     Dates: start: 20100701

REACTIONS (1)
  - OTITIS MEDIA [None]
